FAERS Safety Report 10447815 (Version 1)
Quarter: 2014Q3

REPORT INFORMATION
  Report Type: Spontaneous
  Country: IT (occurrence: IT)
  Receive Date: 20140911
  Receipt Date: 20140911
  Transmission Date: 20150326
  Serious: Yes (Hospitalization)
  Sender: FDA-Public Use
  Company Number: IT-TEVA-507176ISR

PATIENT
  Age: 67 Year
  Sex: Female

DRUGS (1)
  1. LITHIUM [Suspect]
     Active Substance: LITHIUM CARBONATE
     Indication: PRODUCT USED FOR UNKNOWN INDICATION
     Dosage: 1 DOSAGE FORMS DAILY;
     Route: 048
     Dates: start: 20140101, end: 20140602

REACTIONS (3)
  - Somnolence [Unknown]
  - Antipsychotic drug level increased [Unknown]
  - Tremor [Unknown]

NARRATIVE: CASE EVENT DATE: 20140602
